FAERS Safety Report 7963151-0 (Version None)
Quarter: 2011Q4

REPORT INFORMATION
  Report Type: 
  Country: None (occurrence: None)
  Receive Date: 20111207
  Receipt Date: 20111202
  Transmission Date: 20120403
  Serious: Yes (Life-Threatening, Hospitalization)
  Sender: FDA-Public Use
  Company Number: US-AMGEN-USASP2011064201

PATIENT
  Sex: Male

DRUGS (2)
  1. CALCIUM + VITAMIN D [Concomitant]
     Dosage: UNK
  2. XGEVA [Suspect]
     Indication: METASTASES TO BONE
     Dosage: 120 MG, Q4WK

REACTIONS (2)
  - ARRHYTHMIA [None]
  - HYPOCALCAEMIA [None]
